FAERS Safety Report 7796175-7 (Version None)
Quarter: 2011Q4

REPORT INFORMATION
  Report Type: 
  Country: None (occurrence: None)
  Receive Date: 20111004
  Receipt Date: 20110927
  Transmission Date: 20120403
  Serious: Yes (Death, Other)
  Sender: FDA-Public Use
  Company Number: AU-AMGEN-AUSSP2011030288

PATIENT
  Age: 75 Year
  Sex: Male

DRUGS (6)
  1. SERTRALINE HYDROCHLORIDE [Concomitant]
     Dosage: 25 MG, QD
  2. ARANESP [Suspect]
     Indication: RENAL FAILURE CHRONIC
     Dosage: 80 MUG, QWK
     Route: 058
     Dates: start: 20110523
  3. RANITIDINE [Concomitant]
     Dosage: 150 MG, Q12H
     Route: 048
  4. ALLOPURINOL [Concomitant]
     Dosage: 300 MG, QD
     Route: 048
  5. ISOPTIN                            /00014302/ [Concomitant]
     Dosage: 240 MG, QD
     Route: 048
  6. ASPIRIN [Concomitant]
     Dosage: 100 MG, QD
     Route: 048

REACTIONS (6)
  - HAEMOGLOBIN DECREASED [None]
  - APLASIA PURE RED CELL [None]
  - DRUG INEFFECTIVE [None]
  - DEATH [None]
  - GENERAL PHYSICAL HEALTH DETERIORATION [None]
  - NEUTROPHILIA [None]
